FAERS Safety Report 21474979 (Version 2)
Quarter: 2022Q4

REPORT INFORMATION
  Report Type: Spontaneous
  Country: FR (occurrence: FR)
  Receive Date: 20221019
  Receipt Date: 20221128
  Transmission Date: 20230113
  Serious: Yes (Other)
  Sender: FDA-Public Use
  Company Number: FR-ROCHE-2703976

PATIENT
  Age: 59 Year
  Sex: Male
  Weight: 81 kg

DRUGS (4)
  1. VENETOCLAX [Suspect]
     Active Substance: VENETOCLAX
     Indication: Marginal zone lymphoma
     Dosage: 800 MG/D FROM DAY 8 OF CYCLE 1, EVERY DAY DURING 18 MONTHS.?ON 14/FEB/2020, HE RECEIVED LAST 800 ...
     Route: 065
     Dates: start: 20190711
  2. ATEZOLIZUMAB [Suspect]
     Active Substance: ATEZOLIZUMAB
     Indication: Marginal zone lymphoma
     Dosage: ON DAY 2 OF EACH 21-DAY CYCLE DURING 18 MONTHS (24 CYCLES)?ON 29/JAN/2020, HE RECEIVED LAST 1200 ...
     Route: 042
     Dates: start: 20190705
  3. OBINUTUZUMAB [Suspect]
     Active Substance: OBINUTUZUMAB
     Indication: Marginal zone lymphoma
     Dosage: ON DAY 1, DAY 8 AND DAY 15 OF CYCLE 1 AND EACH DAY 1 FROM CYCLE 2 TO CYCLE 8, LAST ADMINISTRATION...
     Route: 042
     Dates: start: 20190704, end: 20201027
  4. OBINUTUZUMAB [Suspect]
     Active Substance: OBINUTUZUMAB
     Indication: Marginal zone lymphoma
     Route: 042
     Dates: start: 20191126

REACTIONS (1)
  - Autoimmune hepatitis [Recovered/Resolved]

NARRATIVE: CASE EVENT DATE: 20200214
